FAERS Safety Report 13225146 (Version 1)
Quarter: 2017Q1

REPORT INFORMATION
  Report Type: Spontaneous
  Country: US (occurrence: US)
  Receive Date: 20170213
  Receipt Date: 20170213
  Transmission Date: 20170428
  Serious: No
  Sender: FDA-Public Use
  Company Number: US-ASTRAZENECA-2017SE14094

PATIENT
  Sex: Female

DRUGS (3)
  1. PULMICORT FLEXHALER [Suspect]
     Active Substance: BUDESONIDE
     Indication: ASTHMA
     Route: 055
  2. XOPENEX [Concomitant]
     Active Substance: LEVALBUTEROL HYDROCHLORIDE
     Indication: NASOPHARYNGITIS
     Dosage: UNKNOWN
  3. XOPENEX [Concomitant]
     Active Substance: LEVALBUTEROL HYDROCHLORIDE
     Indication: COUGH
     Dosage: UNKNOWN

REACTIONS (8)
  - Cough [Unknown]
  - Asthma [Unknown]
  - Nasopharyngitis [Unknown]
  - Stress [Unknown]
  - Drug ineffective [Unknown]
  - Malaise [Unknown]
  - Dyspnoea [Unknown]
  - Intentional product misuse [Unknown]
